FAERS Safety Report 19558411 (Version 1)
Quarter: 2021Q3

REPORT INFORMATION
  Report Type: Report from Study
  Country: US (occurrence: US)
  Receive Date: 20210714
  Receipt Date: 20210714
  Transmission Date: 20211014
  Serious: No
  Sender: FDA-Public Use
  Company Number: NVSC2021US134106

PATIENT
  Sex: Male

DRUGS (2)
  1. AMIODARONE [Suspect]
     Active Substance: AMIODARONE
     Indication: PRODUCT USED FOR UNKNOWN INDICATION
     Dosage: UNK(STARTED ON AROUND THE SAME TIME AS THE ENTRESTO AFTER HIS HEART ABLATION IN MAY 2021)
     Route: 065
     Dates: start: 202105
  2. ENTRESTO [Suspect]
     Active Substance: SACUBITRIL\VALSARTAN
     Indication: PRODUCT USED FOR UNKNOWN INDICATION
     Dosage: UNK, BID
     Route: 048
     Dates: start: 202105

REACTIONS (3)
  - Intentional dose omission [Unknown]
  - Hypotension [Unknown]
  - Heart rate decreased [Unknown]
